FAERS Safety Report 5902620-1 (Version None)
Quarter: 2008Q3

REPORT INFORMATION
  Report Type: 
  Country: None (occurrence: None)
  Receive Date: 20080926
  Receipt Date: 20080916
  Transmission Date: 20090109
  Serious: Yes (Other)
  Sender: FDA-Public Use
  Company Number: 2008AP002432

PATIENT

DRUGS (1)
  1. FLUTICASONE PROPIONATE [Suspect]
     Dosage: NAS
     Route: 045

REACTIONS (2)
  - BLEPHARITIS [None]
  - RETINITIS [None]
